FAERS Safety Report 24326097 (Version 4)
Quarter: 2025Q1

REPORT INFORMATION
  Report Type: Report from Study
  Country: IT (occurrence: IT)
  Receive Date: 20240917
  Receipt Date: 20250303
  Transmission Date: 20250408
  Serious: Yes (Other)
  Sender: TAKEDA
  Company Number: IT-TAKEDA-2021TUS034219

PATIENT
  Age: 60 Year
  Sex: Female

DRUGS (9)
  1. TEDUGLUTIDE [Suspect]
     Active Substance: TEDUGLUTIDE
     Indication: Short-bowel syndrome
     Dosage: 0.3 MILLILITER, QD
     Dates: start: 20210512
  2. TEDUGLUTIDE [Suspect]
     Active Substance: TEDUGLUTIDE
     Dosage: 0.3 MILLILITER, QD
  3. TEDUGLUTIDE [Suspect]
     Active Substance: TEDUGLUTIDE
     Dosage: 0.3 MILLILITER, QD
  4. TEDUGLUTIDE [Suspect]
     Active Substance: TEDUGLUTIDE
     Dosage: 0.30 MILLILITER, QD
  5. TEDUGLUTIDE [Suspect]
     Active Substance: TEDUGLUTIDE
     Dosage: 0.15 MILLILITER, QD
  6. TEDUGLUTIDE [Suspect]
     Active Substance: TEDUGLUTIDE
     Dosage: 0.15 MILLILITER, QD
  7. TEDUGLUTIDE [Suspect]
     Active Substance: TEDUGLUTIDE
     Dosage: 0.15 MILLILITER, QD
  8. TEDUGLUTIDE [Suspect]
     Active Substance: TEDUGLUTIDE
     Dosage: 0.15 MILLILITER, QD
  9. TEDUGLUTIDE [Suspect]
     Active Substance: TEDUGLUTIDE
     Dosage: 0.15 MILLILITER, QD

REACTIONS (9)
  - Vascular device infection [Recovered/Resolved]
  - Inappropriate schedule of product administration [Recovering/Resolving]
  - Gastrointestinal sounds abnormal [Recovering/Resolving]
  - Pain [Recovering/Resolving]
  - Inadequate diet [Recovering/Resolving]
  - Gastrointestinal infection [Recovered/Resolved]
  - Product dose omission in error [Recovered/Resolved]
  - Dyspnoea exertional [Not Recovered/Not Resolved]
  - Pancreatic cyst [Recovering/Resolving]

NARRATIVE: CASE EVENT DATE: 20210525
